FAERS Safety Report 4953784-8 (Version None)
Quarter: 2006Q1

REPORT INFORMATION
  Report Type: 
  Country: None (occurrence: None)
  Receive Date: 20060327
  Receipt Date: 20060313
  Transmission Date: 20060701
  Serious: Yes (Hospitalization)
  Sender: FDA-Public Use
  Company Number: GBWYE467313MAR06

PATIENT
  Sex: Female
  Weight: 46.3 kg

DRUGS (4)
  1. ENBREL [Suspect]
     Indication: POLYARTHRITIS
     Route: 058
     Dates: start: 20011214
  2. MAXITROL [Concomitant]
     Dosage: UNSPECIFIED DOSE 6 TIMES DAILY
     Route: 047
     Dates: start: 20050701
  3. DEXAMETHASONE TAB [Concomitant]
     Route: 047
     Dates: start: 20050401
  4. PREDNISOLONE [Concomitant]
     Route: 047
     Dates: start: 20050701

REACTIONS (4)
  - BLINDNESS [None]
  - CATARACT [None]
  - GLAUCOMA [None]
  - HEADACHE [None]
